FAERS Safety Report 19137861 (Version 1)
Quarter: 2021Q2

REPORT INFORMATION
  Report Type: Spontaneous
  Country: US (occurrence: US)
  Receive Date: 20210414
  Receipt Date: 20210414
  Transmission Date: 20210717
  Serious: No
  Sender: FDA-Public Use
  Company Number: US-ANAZAOHEALTH CORPORATION-2109353

PATIENT
  Age: 70 Year
  Sex: Female
  Weight: 78.27 kg

DRUGS (2)
  1. BEEN ON HRT THERAPY SINCE 2015. HORMONE REPLACEMENT PELLETS: 1 PELLET (TESTOSTERONE) [Suspect]
     Active Substance: TESTOSTERONE
     Indication: HORMONE REPLACEMENT THERAPY
     Route: 058
     Dates: start: 20151217
  2. ESTRADIOL. [Concomitant]
     Active Substance: ESTRADIOL
     Route: 058
     Dates: start: 20151217

REACTIONS (1)
  - Uterine cancer [Unknown]

NARRATIVE: CASE EVENT DATE: 20210402
